FAERS Safety Report 10196043 (Version 1)
Quarter: 2014Q2

REPORT INFORMATION
  Report Type: Spontaneous
  Country: FR (occurrence: None)
  Receive Date: 20140521
  Receipt Date: 20140521
  Transmission Date: 20141212
  Serious: Yes (Other)
  Sender: FDA-Public Use
  Company Number: 2014/034

PATIENT
  Sex: Male

DRUGS (5)
  1. OLANZAPINE [Suspect]
     Indication: PSYCHOTIC DISORDER
  2. PIPERACILLIN [Concomitant]
  3. CEFOTAXIME [Concomitant]
  4. FOSFOMYCIN [Concomitant]
  5. RIFAMPICIN [Concomitant]

REACTIONS (7)
  - Liver disorder [None]
  - Hepatocellular injury [None]
  - Cholestasis [None]
  - Drug reaction with eosinophilia and systemic symptoms [None]
  - Cross sensitivity reaction [None]
  - Pyrexia [None]
  - Lymphadenopathy [None]
